FAERS Safety Report 6018799-X (Version None)
Quarter: 2008Q4

REPORT INFORMATION
  Report Type: 
  Country: None (occurrence: None)
  Receive Date: 20081222
  Receipt Date: 20081205
  Transmission Date: 20090506
  Serious: Yes (Hospitalization)
  Sender: FDA-Public Use
  Company Number: 16076

PATIENT
  Age: 64 Year
  Sex: Female

DRUGS (4)
  1. METOPROLOL SUCCINATE [Suspect]
     Indication: HYPERTENSION
     Dosage: 50 MG ONCE DAILY, ORAL
     Route: 048
     Dates: start: 20080821, end: 20081201
  2. VITAMIN B 12 COMPLEX [Concomitant]
  3. CALCIUM [Concomitant]
  4. COENZYME Q10 [Concomitant]

REACTIONS (3)
  - ATRIAL FIBRILLATION [None]
  - HEART RATE IRREGULAR [None]
  - TACHYCARDIA [None]
